FAERS Safety Report 15000620 (Version 1)
Quarter: 2018Q2

REPORT INFORMATION
  Report Type: Spontaneous
  Country: US (occurrence: US)
  Receive Date: 20180612
  Receipt Date: 20180612
  Transmission Date: 20180711
  Serious: Yes (Hospitalization, Other)
  Sender: FDA-Public Use
  Company Number: US-PFIZER INC-2018235551

PATIENT
  Age: 31 Year
  Sex: Male

DRUGS (6)
  1. FOLATE [Concomitant]
     Active Substance: FOLATE SODIUM
     Indication: ALCOHOL USE
     Dosage: UNK
  2. DEXTROSE. [Concomitant]
     Active Substance: DEXTROSE
     Indication: ALCOHOL USE
     Dosage: UNK (CONTAINING IVF)
     Route: 042
  3. THIAMINE. [Concomitant]
     Active Substance: THIAMINE
     Indication: ALCOHOL USE
     Dosage: UNK
  4. MEROPENEM. [Suspect]
     Active Substance: MEROPENEM
     Indication: PANCREATITIS
     Dosage: UNK
  5. INSULIN [Concomitant]
     Active Substance: INSULIN NOS
     Indication: PANCREATITIS
     Dosage: UNK (INFUSION)
     Route: 042
  6. INSULIN [Concomitant]
     Active Substance: INSULIN NOS
     Indication: HYPERTRIGLYCERIDAEMIA

REACTIONS (2)
  - Pancreatitis necrotising [Recovered/Resolved]
  - Pancreatitis haemorrhagic [Recovered/Resolved]
